FAERS Safety Report 9349174 (Version 2)
Quarter: 2013Q2

REPORT INFORMATION
  Report Type: Spontaneous
  Country: BE (occurrence: BE)
  Receive Date: 20130614
  Receipt Date: 20130621
  Transmission Date: 20140414
  Serious: Yes (Life-Threatening, Hospitalization, Disabling, Other)
  Sender: FDA-Public Use
  Company Number: BE-ASTRAZENECA-2013SE42640

PATIENT
  Age: 28883 Day
  Sex: Female
  Weight: 53 kg

DRUGS (4)
  1. BRILIQUE [Suspect]
     Indication: ACUTE MYOCARDIAL INFARCTION
     Route: 048
     Dates: start: 20130421, end: 20130423
  2. CORDARONE [Concomitant]
     Dates: start: 2013
  3. ASAFLOW [Concomitant]
     Dates: start: 2013
  4. LIPITOR [Concomitant]
     Dates: start: 20130421

REACTIONS (10)
  - Coma [Unknown]
  - Altered state of consciousness [Unknown]
  - Hemiplegia [Unknown]
  - Muscular weakness [Unknown]
  - Muscular weakness [Unknown]
  - Facial paresis [Unknown]
  - Dysarthria [Unknown]
  - Sensory loss [Unknown]
  - Amnesia [Unknown]
  - Cerebral haemorrhage [Recovered/Resolved with Sequelae]
